FAERS Safety Report 4802563-0 (Version None)
Quarter: 2005Q4

REPORT INFORMATION
  Report Type: 
  Country: None (occurrence: None)
  Receive Date: 20051011
  Receipt Date: 20050930
  Transmission Date: 20060501
  Serious: Yes (Disabling, Other)
  Sender: FDA-Public Use
  Company Number: 2005136857

PATIENT
  Age: 56 Year
  Sex: Female
  Weight: 88.905 kg

DRUGS (18)
  1. LIPITOR [Suspect]
     Indication: BLOOD CHOLESTEROL INCREASED
     Dosage: 80 MG (80 MG, 1 IN 1 D), ORAL
     Route: 048
     Dates: start: 19970101
  2. LOPID [Suspect]
     Indication: BLOOD CHOLESTEROL INCREASED
     Dosage: 1200 MG (600 MG, 2 IN 1 D), ORAL
     Route: 048
     Dates: start: 19870101
  3. GEMFIBROZIL [Suspect]
     Indication: BLOOD CHOLESTEROL INCREASED
  4. NIACIN [Suspect]
     Indication: HIGH DENSITY LIPOPROTEIN
  5. GLUCOPHAGE [Concomitant]
  6. AVAPRO [Concomitant]
  7. PROZAC [Concomitant]
  8. XANAX [Concomitant]
  9. TOPROL-XL [Concomitant]
  10. NEXIUM [Concomitant]
  11. SYNTHROID [Concomitant]
  12. ZETIA [Concomitant]
  13. IMDUR [Concomitant]
  14. NITROSTAT [Concomitant]
  15. FLONASE [Concomitant]
  16. LASIX [Concomitant]
  17. QUININE SULFATE [Concomitant]
  18. HUMALOG [Concomitant]

REACTIONS (11)
  - ACCIDENT AT WORK [None]
  - CORONARY ARTERY OCCLUSION [None]
  - DIFFICULTY IN WALKING [None]
  - ECONOMIC PROBLEM [None]
  - FALL [None]
  - INTERVERTEBRAL DISC DISORDER [None]
  - MYOCARDIAL INFARCTION [None]
  - PAIN [None]
  - PROCEDURAL COMPLICATION [None]
  - RASH [None]
  - UPPER LIMB FRACTURE [None]
